FAERS Safety Report 4869961-0 (Version None)
Quarter: 2005Q4

REPORT INFORMATION
  Report Type: 
  Country: None (occurrence: None)
  Receive Date: 20051223
  Receipt Date: 20051216
  Transmission Date: 20060501
  Serious: Yes (Death, Hospitalization)
  Sender: FDA-Public Use
  Company Number: HQWYE634314JAN05

PATIENT
  Age: 32 Year
  Sex: Male
  Weight: 77.18 kg

DRUGS (1)
  1. EFFEXOR [Suspect]
     Indication: DEPRESSION
     Dosage: 37.5 MG

REACTIONS (13)
  - ASPHYXIA [None]
  - COMPLETED SUICIDE [None]
  - FEELING ABNORMAL [None]
  - HEADACHE [None]
  - INSOMNIA [None]
  - MALAISE [None]
  - MENTAL STATUS CHANGES [None]
  - NIGHTMARE [None]
  - NONSPECIFIC REACTION [None]
  - PULMONARY CONGESTION [None]
  - SELF-MEDICATION [None]
  - SUICIDAL IDEATION [None]
  - VISUAL DISTURBANCE [None]
